FAERS Safety Report 9097015 (Version 3)
Quarter: 2014Q1

REPORT INFORMATION
  Report Type: Spontaneous
  Country: FR (occurrence: None)
  Receive Date: 20130125
  Receipt Date: 20140108
  Transmission Date: 20141002
  Serious: Yes (Other)
  Sender: FDA-Public Use
  Company Number: FK201300111

PATIENT
  Age: 60 Year
  Sex: Female

DRUGS (6)
  1. PROPOFOL [Suspect]
     Indication: ANAESTHESIA
     Dosage: 200 MG, 1 IN 1 D
     Route: 042
     Dates: start: 20120404, end: 20120404
  2. TRACRIUM [Suspect]
     Indication: PRODUCT USED FOR UNKNOWN INDICATION
     Dosage: 50 MG, 1 IN 1 D
     Route: 042
     Dates: start: 20120404, end: 20120404
  3. HYPNOVEL [Suspect]
     Indication: PRODUCT USED FOR UNKNOWN INDICATION
     Dosage: 2 MG, 1 IN 1 D
     Route: 042
     Dates: start: 20120404, end: 20120404
  4. SUFENTA [Suspect]
     Indication: PRODUCT USED FOR UNKNOWN INDICATION
     Dosage: 45 UG, 1 IN 1 D
     Route: 042
  5. CALTRATE [Concomitant]
  6. VITAMIN C [Concomitant]

REACTIONS (6)
  - Shock [None]
  - Tachycardia [None]
  - Hypotension [None]
  - Erythema [None]
  - Urticaria [None]
  - Face oedema [None]
